FAERS Safety Report 8494128-7 (Version None)
Quarter: 2012Q2

REPORT INFORMATION
  Report Type: 
  Country: None (occurrence: None)
  Receive Date: 20120628
  Receipt Date: 20120613
  Transmission Date: 20120825
  Serious: Yes (Death)
  Sender: FDA-Public Use
  Company Number: EU-2012-10175

PATIENT
  Age: 80 Year
  Sex: Male

DRUGS (2)
  1. SAMSCA [Suspect]
     Indication: INAPPROPRIATE ANTIDIURETIC HORMONE SECRETION
     Dosage: 15 MG MILLIGRAM(S), DAILY DOSE
  2. SAMSCA [Suspect]
     Indication: NEOPLASM
     Dosage: 15 MG MILLIGRAM(S), DAILY DOSE

REACTIONS (2)
  - NEOPLASM PROGRESSION [None]
  - BRONCHIAL CARCINOMA [None]
